FAERS Safety Report 11530514 (Version 1)
Quarter: 2015Q3

REPORT INFORMATION
  Report Type: Spontaneous
  Country: CA (occurrence: CA)
  Receive Date: 20150921
  Receipt Date: 20150921
  Transmission Date: 20151125
  Serious: Yes (Death)
  Sender: FDA-Public Use
  Company Number: CA-TEVA-593891ACC

PATIENT
  Age: 85 Year
  Sex: Female

DRUGS (2)
  1. AMLODIPINE [Suspect]
     Active Substance: AMLODIPINE BESYLATE
     Route: 065
  2. SANDOZ TELMISARTAN [Suspect]
     Active Substance: TELMISARTAN
     Dosage: 1 DOSAGE FORMS DAILY;
     Route: 065

REACTIONS (1)
  - Death [Fatal]
